FAERS Safety Report 10756897 (Version 2)
Quarter: 2015Q3

REPORT INFORMATION
  Report Type: Spontaneous
  Country: US (occurrence: US)
  Receive Date: 20150203
  Receipt Date: 20150819
  Transmission Date: 20151125
  Serious: No
  Sender: FDA-Public Use
  Company Number: US-GILEAD-2015-0134946

PATIENT
  Age: 67 Year
  Sex: Female

DRUGS (2)
  1. ADCIRCA [Suspect]
     Active Substance: TADALAFIL
     Indication: PRODUCT USED FOR UNKNOWN INDICATION
     Route: 065
     Dates: start: 20150119, end: 20150123
  2. LETAIRIS [Suspect]
     Active Substance: AMBRISENTAN
     Indication: PRODUCT USED FOR UNKNOWN INDICATION
     Dosage: 5 MG, QD
     Route: 065

REACTIONS (7)
  - Anxiety [Unknown]
  - Confusional state [Unknown]
  - Chest pain [Unknown]
  - Malaise [Unknown]
  - Depression [Unknown]
  - Dyspnoea [Unknown]
  - Gait disturbance [Unknown]

NARRATIVE: CASE EVENT DATE: 20150119
